FAERS Safety Report 12501559 (Version 1)
Quarter: 2016Q2

REPORT INFORMATION
  Report Type: Spontaneous
  Country: US (occurrence: US)
  Receive Date: 20160627
  Receipt Date: 20160627
  Transmission Date: 20160815
  Serious: Yes (Death)
  Sender: FDA-Public Use
  Company Number: PHEH2016US015823

PATIENT
  Age: 27 Year
  Sex: Female

DRUGS (1)
  1. TYKERB [Suspect]
     Active Substance: LAPATINIB DITOSYLATE
     Indication: BREAST CANCER FEMALE
     Dosage: 1250 MG, QD (FOR 14 DAYS THEN OFF 7 DAYS)
     Route: 048
     Dates: start: 20160212

REACTIONS (1)
  - Death [Fatal]

NARRATIVE: CASE EVENT DATE: 20160317
